FAERS Safety Report 8407783-4 (Version None)
Quarter: 2012Q2

REPORT INFORMATION
  Report Type: 
  Country: None (occurrence: None)
  Receive Date: 20120604
  Receipt Date: 20120530
  Transmission Date: 20120825
  Serious: Yes (Hospitalization, Congenital Anomaly)
  Sender: FDA-Public Use
  Company Number: US-GLAXOSMITHKLINE-A0979878A

PATIENT
  Sex: Male

DRUGS (1)
  1. PAXIL [Suspect]
     Indication: PRODUCT USED FOR UNKNOWN INDICATION
     Route: 064

REACTIONS (9)
  - POLYHYDRAMNIOS [None]
  - CHOANAL ATRESIA [None]
  - PREMATURE BABY [None]
  - CAESAREAN SECTION [None]
  - CRANIOSYNOSTOSIS [None]
  - MATERNAL DRUGS AFFECTING FOETUS [None]
  - CRANIOFACIAL DYSOSTOSIS [None]
  - FOETAL EXPOSURE DURING PREGNANCY [None]
  - APERT'S SYNDROME [None]
